FAERS Safety Report 7924375-1 (Version None)
Quarter: 2011Q4

REPORT INFORMATION
  Report Type: 
  Country: None (occurrence: None)
  Receive Date: 20111117
  Receipt Date: 20110321
  Transmission Date: 20120403
  Serious: No
  Sender: FDA-Public Use
  Company Number: US-AMGEN-USASP2011016147

PATIENT
  Age: 34 Year
  Sex: Male
  Weight: 104.31 kg

DRUGS (1)
  1. ENBREL [Suspect]
     Indication: PSORIASIS
     Dosage: 25 MG, 2X/DAY
     Route: 030
     Dates: start: 20100701

REACTIONS (1)
  - DEVICE DEPLOYMENT ISSUE [None]
